FAERS Safety Report 21423530 (Version 1)
Quarter: 2022Q4

REPORT INFORMATION
  Report Type: Spontaneous
  Country: US (occurrence: US)
  Receive Date: 20221007
  Receipt Date: 20221007
  Transmission Date: 20230112
  Serious: No
  Sender: FDA-Public Use
  Company Number: US-HERON THERAPEUTICS, INC-HRTX-2022-000843

PATIENT
  Age: 56 Year
  Sex: Male

DRUGS (2)
  1. ZYNRELEF [Suspect]
     Active Substance: BUPIVACAINE\MELOXICAM
     Indication: Postoperative analgesia
     Dosage: UNK UNK, SINGLE
     Route: 026
  2. XARELTO [Concomitant]
     Active Substance: RIVAROXABAN
     Indication: Bunion operation
     Dosage: UNK UNK, SINGLE
     Dates: start: 20220729

REACTIONS (2)
  - Wound dehiscence [Unknown]
  - Postoperative wound infection [Unknown]

NARRATIVE: CASE EVENT DATE: 20220801
